FAERS Safety Report 16625077 (Version 1)
Quarter: 2019Q3

REPORT INFORMATION
  Report Type: Report from Study
  Country: GR (occurrence: GR)
  Receive Date: 20190724
  Receipt Date: 20190724
  Transmission Date: 20191004
  Serious: Yes (Hospitalization)
  Sender: FDA-Public Use
  Company Number: GR-PFIZER INC-2019316590

PATIENT
  Age: 77 Year
  Sex: Male
  Weight: 70 kg

DRUGS (10)
  1. SODIUM CHLORIDE. [Concomitant]
     Active Substance: SODIUM CHLORIDE
     Indication: HYPONATRAEMIA
     Dosage: UNK
     Route: 042
     Dates: start: 20190402, end: 20190405
  2. ETOPOSIDE. [Suspect]
     Active Substance: ETOPOSIDE
     Indication: SMALL CELL LUNG CANCER
     Dosage: 180 MG, EVERY 3 WEEKS
     Route: 042
     Dates: start: 20190220
  3. DEXATON [DEXAMETHASONE SODIUM PHOSPHATE] [Concomitant]
     Indication: PREMEDICATION
     Dosage: EVERY 3 MONTHS, 1 AMP
     Route: 042
     Dates: start: 20190220, end: 20190611
  4. FENISTIL [Concomitant]
     Active Substance: DIMETHINDENE
     Indication: PREMEDICATION
     Dosage: 1 AMP, EVERY 3 WEEKS
     Route: 042
     Dates: start: 20190220, end: 20190611
  5. ZOFRON [ONDANSETRON] [Concomitant]
     Indication: PREMEDICATION
     Dosage: 1 AMP, EVERY 3 WEEKS
     Route: 042
     Dates: start: 20190220, end: 20190611
  6. CARBOPLATIN. [Suspect]
     Active Substance: CARBOPLATIN
     Indication: SMALL CELL LUNG CANCER
     Dosage: 500 MG, EVERY 3 WEEKS
     Route: 042
     Dates: start: 20190220
  7. T4 [Concomitant]
     Active Substance: LEVOTHYROXINE
     Indication: HYPOTHYROIDISM
     Dosage: 75 UG, 1X/DAY
     Route: 048
     Dates: start: 20190404
  8. AVELUMAB [Suspect]
     Active Substance: AVELUMAB
     Indication: SMALL CELL LUNG CANCER
     Dosage: 650 MG, CYCLIC (ONCE EVERY TWO WEEKS)
     Route: 042
     Dates: start: 20190410
  9. ZANTAC [Concomitant]
     Active Substance: RANITIDINE HYDROCHLORIDE
     Indication: PREMEDICATION
     Dosage: 1 AMP, EVERY 3 WEEKS
     Route: 042
     Dates: start: 20190220, end: 20190611
  10. SODIUM CHLORIDE. [Concomitant]
     Active Substance: SODIUM CHLORIDE
     Dosage: UNK
     Route: 042
     Dates: start: 20190622

REACTIONS (1)
  - Hyponatraemia [Not Recovered/Not Resolved]

NARRATIVE: CASE EVENT DATE: 20190710
